FAERS Safety Report 7396390-0 (Version None)
Quarter: 2011Q1

REPORT INFORMATION
  Report Type: 
  Country: None (occurrence: None)
  Receive Date: 20110325
  Receipt Date: 20110318
  Transmission Date: 20110831
  Serious: Yes (Other)
  Sender: FDA-Public Use
  Company Number: 2011MA002594

PATIENT
  Sex: Female

DRUGS (7)
  1. LORATADINE [Concomitant]
  2. AMITRIPTYLINE [Concomitant]
  3. DICLOFENAC [Concomitant]
  4. ACETAMINOPHEN AND CODEINE PHOSPHATE [Concomitant]
  5. SUMATRIPTAN [Concomitant]
  6. GABAPENTIN [Suspect]
     Indication: PAIN
     Dosage: 900 MG; TID; PO
     Route: 048
     Dates: start: 20110107, end: 20110201
  7. PHOSPHATE ION [Concomitant]

REACTIONS (2)
  - SLEEP TALKING [None]
  - SOMNAMBULISM [None]
